FAERS Safety Report 20938085 (Version 1)
Quarter: 2022Q2

REPORT INFORMATION
  Report Type: Spontaneous
  Country: US (occurrence: None)
  Receive Date: 20220608
  Receipt Date: 20220608
  Transmission Date: 20220720
  Serious: Yes (Other)
  Sender: FDA-Public Use
  Company Number: None

PATIENT
  Age: 60 Year
  Sex: Male

DRUGS (1)
  1. ABIRATERONE [Suspect]
     Active Substance: ABIRATERONE
     Dosage: 1000 DAILY ORAL?
     Route: 048
     Dates: start: 2022

REACTIONS (9)
  - Arthralgia [None]
  - Pelvic pain [None]
  - Influenza like illness [None]
  - Weight decreased [None]
  - Blood glucose increased [None]
  - Pain [None]
  - Constipation [None]
  - Product dose omission issue [None]
  - Metastases to lung [None]

NARRATIVE: CASE EVENT DATE: 20220601
